FAERS Safety Report 6919880-0 (Version None)
Quarter: 2010Q3

REPORT INFORMATION
  Report Type: 
  Country: None (occurrence: None)
  Receive Date: 20100811
  Receipt Date: 20100805
  Transmission Date: 20110219
  Serious: Yes (Congenital Anomaly)
  Sender: FDA-Public Use
  Company Number: A0872561A

PATIENT
  Sex: Female
  Weight: 2.4 kg

DRUGS (5)
  1. COMBIVIR [Suspect]
     Indication: HIV INFECTION
     Dates: start: 20030123, end: 20030225
  2. VIRACEPT [Suspect]
     Indication: HIV INFECTION
     Dates: start: 20021021, end: 20030225
  3. VIDEX [Suspect]
     Indication: HIV INFECTION
     Dates: start: 20021021, end: 20030122
  4. IRON [Concomitant]
  5. TOBACCO [Concomitant]

REACTIONS (2)
  - DRUG EXPOSURE DURING PREGNANCY [None]
  - VENTRICULAR SEPTAL DEFECT [None]
